FAERS Safety Report 19736456 (Version 1)
Quarter: 2021Q3

REPORT INFORMATION
  Report Type: Spontaneous
  Country: NL (occurrence: NL)
  Receive Date: 20210823
  Receipt Date: 20210823
  Transmission Date: 20211014
  Serious: Yes (Other)
  Sender: FDA-Public Use
  Company Number: NL-MYLANLABS-2021M1053278

PATIENT
  Sex: Female
  Weight: 69 kg

DRUGS (4)
  1. STRUMAZOL [Concomitant]
     Active Substance: METHIMAZOLE
     Dosage: UNK
  2. EUTHYROX [Concomitant]
     Active Substance: LEVOTHYROXINE SODIUM
  3. CITALOPRAM [Suspect]
     Active Substance: CITALOPRAM HYDROBROMIDE
     Indication: DEPRESSION
     Dosage: 20 MILLIGRAM, QD (1DD1)
     Dates: start: 2013
  4. PROPRANOLOL HYDROCHLORIDE. [Concomitant]
     Active Substance: PROPRANOLOL HYDROCHLORIDE
     Dosage: ONBEKEND. SINDS KORT GESTART.

REACTIONS (1)
  - Thyroiditis [Not Recovered/Not Resolved]
